FAERS Safety Report 5936200-9 (Version None)
Quarter: 2008Q4

REPORT INFORMATION
  Report Type: 
  Country: None (occurrence: None)
  Receive Date: 20081030
  Receipt Date: 20081021
  Transmission Date: 20090506
  Serious: Yes (Other)
  Sender: FDA-Public Use
  Company Number: BR-ALLERGAN-0813365US

PATIENT
  Age: 78 Year
  Sex: Female

DRUGS (1)
  1. GANFORT [Suspect]
     Indication: GLAUCOMA
     Dosage: 1 GTT, QD
     Route: 047
     Dates: start: 20081006, end: 20081015

REACTIONS (7)
  - ASTHMA [None]
  - BLOOD PRESSURE DECREASED [None]
  - CATARACT [None]
  - HYPERAEMIA [None]
  - INSOMNIA [None]
  - RHINORRHOEA [None]
  - SKIN HYPERPIGMENTATION [None]
